FAERS Safety Report 17164476 (Version 2)
Quarter: 2020Q1

REPORT INFORMATION
  Report Type: Spontaneous
  Country: FR (occurrence: FR)
  Receive Date: 20191217
  Receipt Date: 20200204
  Transmission Date: 20200409
  Serious: Yes (Hospitalization, Other)
  Sender: FDA-Public Use
  Company Number: FR-PFIZER INC-2019541111

PATIENT
  Age: 33 Year
  Sex: Female

DRUGS (5)
  1. TAZOBACTAM [Suspect]
     Active Substance: TAZOBACTAM
     Indication: ABSCESS
     Dosage: UNK
     Route: 042
     Dates: start: 20191118, end: 20191125
  2. KETOPROFENE [Suspect]
     Active Substance: KETOPROFEN
     Dosage: UNK
     Route: 042
     Dates: start: 20191118, end: 20191123
  3. PANTOPRAZOLE [Suspect]
     Active Substance: PANTOPRAZOLE
     Dosage: UNK
     Route: 042
     Dates: start: 20191118, end: 20191125
  4. PIPERACILLINE [Suspect]
     Active Substance: PIPERACILLIN SODIUM
     Indication: ABSCESS
     Dosage: UNK
     Route: 042
     Dates: start: 20191118, end: 20191125
  5. METRONIDAZOLE. [Suspect]
     Active Substance: METRONIDAZOLE
     Indication: ABSCESS
     Dosage: UNK
     Route: 042
     Dates: start: 20191118, end: 20191125

REACTIONS (1)
  - Neutropenia [Not Recovered/Not Resolved]

NARRATIVE: CASE EVENT DATE: 20191125
